FAERS Safety Report 7517638-5 (Version None)
Quarter: 2011Q2

REPORT INFORMATION
  Report Type: 
  Country: None (occurrence: None)
  Receive Date: 20110601
  Receipt Date: 20110518
  Transmission Date: 20111010
  Serious: No
  Sender: FDA-Public Use
  Company Number: US-ELI_LILLY_AND_COMPANY-US201104001931

PATIENT
  Weight: 76.644 kg

DRUGS (10)
  1. LEVOTHYROXINE SODIUM [Concomitant]
     Dosage: 50 UG, UNK
     Route: 048
  2. TYLENOL                                 /SCH/ [Concomitant]
     Dosage: 325 MG, PRN
     Route: 048
  3. VIACTIV                                 /USA/ [Concomitant]
     Dosage: 500 MG, UNK
     Route: 048
  4. FLEXERIL [Concomitant]
     Dosage: 5 MG, UNK
     Route: 048
  5. MAXZIDE [Concomitant]
     Dosage: UNK, QD
  6. LEVOTHYROXINE SODIUM [Concomitant]
     Dosage: 75 UG, UNK
     Route: 048
  7. VITAMIN D [Concomitant]
     Dosage: 2000 U, QD
     Route: 048
  8. FORTEO [Suspect]
     Indication: OSTEOPOROSIS
     Dosage: 20 UG, QD
     Dates: start: 20100803
  9. ATENOLOL [Concomitant]
     Dosage: 50 MG, QD
     Route: 048
  10. XANAX [Concomitant]
     Dosage: 0.25 MG, PRN
     Route: 048

REACTIONS (10)
  - KYPHOSIS [None]
  - BLOOD POTASSIUM DECREASED [None]
  - MUSCLE TIGHTNESS [None]
  - ENDOCRINE DISORDER [None]
  - NECK PAIN [None]
  - MIGRAINE [None]
  - LYMPHADENOPATHY [None]
  - MUSCLE SPASMS [None]
  - ARTHRALGIA [None]
  - GOITRE [None]
